FAERS Safety Report 5036211-4 (Version None)
Quarter: 2006Q2

REPORT INFORMATION
  Report Type: 
  Country: None (occurrence: None)
  Receive Date: 20060531
  Receipt Date: 20060110
  Transmission Date: 20061013
  Serious: Yes (Other)
  Sender: FDA-Public Use
  Company Number: 200610094GDS

PATIENT
  Age: 29 Year
  Sex: Female

DRUGS (2)
  1. NIFEDIPINE [Suspect]
     Dosage: 60 MG, TOTAL DAILY
  2. CYCLOSPORINE [Suspect]
     Dosage: 100 MG, TOTAL DAILY

REACTIONS (1)
  - GINGIVAL HYPERPLASIA [None]
